FAERS Safety Report 5148063-2 (Version None)
Quarter: 2006Q4

REPORT INFORMATION
  Report Type: 
  Country: None (occurrence: None)
  Receive Date: 20060918
  Receipt Date: 20051005
  Transmission Date: 20070319
  Serious: Yes (Hospitalization)
  Sender: FDA-Public Use
  Company Number: US-JNJFOC-20050801424

PATIENT
  Age: 37 Year
  Sex: Male
  Weight: 90.7194 kg

DRUGS (3)
  1. TOPAMAX [Suspect]
     Indication: MIGRAINE PROPHYLAXIS
     Dosage: 300 MG, IN 1 DAY, ORAL
     Route: 048
     Dates: start: 20050506, end: 20050621
  2. LEXAPRO (SSRI) [Concomitant]
  3. WELLBUTRIN XL [Concomitant]

REACTIONS (1)
  - NEPHROLITHIASIS [None]
